FAERS Safety Report 5781757-4 (Version None)
Quarter: 2008Q2

REPORT INFORMATION
  Report Type: 
  Country: None (occurrence: None)
  Receive Date: 20080623
  Receipt Date: 20070831
  Transmission Date: 20081010
  Serious: No
  Sender: FDA-Public Use
  Company Number: US-ASTRAZENECA-2007UW20715

PATIENT
  Age: 69 Year
  Sex: Female
  Weight: 51.3 kg

DRUGS (5)
  1. RHINOCORT [Suspect]
     Indication: MULTIPLE ALLERGIES
     Route: 045
     Dates: start: 20070501
  2. ASTELIN [Concomitant]
  3. ESTROTEST [Concomitant]
  4. DIAZIDE [Concomitant]
  5. RAQ [Concomitant]

REACTIONS (1)
  - URTICARIA [None]
